FAERS Safety Report 15732459 (Version 1)
Quarter: 2018Q4

REPORT INFORMATION
  Report Type: Spontaneous
  Country: US (occurrence: US)
  Receive Date: 20181217
  Receipt Date: 20181217
  Transmission Date: 20190205
  Serious: No
  Sender: FDA-Public Use
  Company Number: None

PATIENT
  Age: 38 Year
  Sex: Female
  Weight: 72 kg

DRUGS (1)
  1. MONISTAT 1 COMBINATION PACK [Suspect]
     Active Substance: MICONAZOLE NITRATE
     Indication: FUNGAL INFECTION
     Dosage: ?          QUANTITY:1 ONE OVULE;?
     Route: 067
     Dates: start: 20181126

REACTIONS (5)
  - Application site rash [None]
  - Dysuria [None]
  - Application site pain [None]
  - Application site erythema [None]
  - Chemical burn [None]

NARRATIVE: CASE EVENT DATE: 20181126
